FAERS Safety Report 20305045 (Version 1)
Quarter: 2022Q1

REPORT INFORMATION
  Report Type: Spontaneous
  Country: US (occurrence: US)
  Receive Date: 20220106
  Receipt Date: 20220106
  Transmission Date: 20220423
  Serious: Yes (Hospitalization)
  Sender: FDA-Public Use
  Company Number: US-MIRM-000260

PATIENT
  Age: 1 Year
  Sex: Male

DRUGS (11)
  1. LIVMARLI [Suspect]
     Active Substance: MARALIXIBAT CHLORIDE
     Indication: Pruritus
     Route: 048
     Dates: start: 20211204
  2. 4356831 (GLOBALC3Sep19): EleCare [Concomitant]
     Indication: Product used for unknown indication
  3. 1324920 (GLOBALC3Sep19): Hydroxyzine HCl [Concomitant]
     Indication: Product used for unknown indication
  4. 1328139 (GLOBALC3Sep19): Rifampin [Concomitant]
     Indication: Product used for unknown indication
  5. 1328777 (GLOBALC3Sep19): Ursodiol [Concomitant]
     Indication: Product used for unknown indication
  6. 3532667 (GLOBALC3Sep19): Bactrim DS [Concomitant]
     Indication: Product used for unknown indication
  7. 1328915 (GLOBALC3Sep19): Vitamin K1 [Concomitant]
     Indication: Product used for unknown indication
  8. 1327311 (GLOBALC3Sep19): Zinc sulfate [Concomitant]
     Indication: Product used for unknown indication
  9. 1326650 (GLOBALC3Sep19): Iron Up [Concomitant]
     Indication: Product used for unknown indication
  10. 1328876 (GLOBALC3Sep19): Vitamin D3 [Concomitant]
     Indication: Product used for unknown indication
  11. 1328878 (GLOBALC3Sep19): Vitamin E [Concomitant]
     Indication: Product used for unknown indication

REACTIONS (4)
  - Decreased appetite [Recovered/Resolved]
  - Retching [Recovered/Resolved]
  - Cough [Recovered/Resolved]
  - Respiratory tract congestion [Recovered/Resolved]

NARRATIVE: CASE EVENT DATE: 20211214
